FAERS Safety Report 16483480 (Version 1)
Quarter: 2019Q2

REPORT INFORMATION
  Report Type: Spontaneous
  Country: ES (occurrence: ES)
  Receive Date: 20190627
  Receipt Date: 20190627
  Transmission Date: 20190711
  Serious: Yes (Hospitalization)
  Sender: FDA-Public Use
  Company Number: ES-JNJFOC-20190618733

PATIENT
  Age: 39 Year
  Sex: Male

DRUGS (3)
  1. ZALDIAR [Suspect]
     Active Substance: ACETAMINOPHEN\TRAMADOL HYDROCHLORIDE
     Indication: MUSCULOSKELETAL PAIN
     Dosage: 1 DF, EVERY 8 HRS
     Route: 048
     Dates: start: 20190327, end: 20190403
  2. DEXKETOPROFEN TROMETAMOL W/TRAMADOL HYDROCHLO [Suspect]
     Active Substance: DEXKETOPROFEN\TRAMADOL
     Indication: MUSCULOSKELETAL PAIN
     Dosage: 1 DF, EVERY 12 HRS, ENANPLUS
     Route: 048
     Dates: start: 20190403, end: 20190406
  3. SYMBICORT [Concomitant]
     Active Substance: BUDESONIDE\FORMOTEROL FUMARATE DIHYDRATE
     Indication: ASTHMA
     Dosage: UNK, AS NEEDED
     Route: 055

REACTIONS (1)
  - Hiccups [Recovered/Resolved]

NARRATIVE: CASE EVENT DATE: 20190404
